FAERS Safety Report 5486923-3 (Version None)
Quarter: 2007Q4

REPORT INFORMATION
  Report Type: 
  Country: None (occurrence: None)
  Receive Date: 20071016
  Receipt Date: 20071011
  Transmission Date: 20080405
  Serious: Yes (Disabling)
  Sender: FDA-Public Use
  Company Number: US-MERCK-0710USA01950

PATIENT
  Age: 41 Year
  Sex: Female
  Weight: 53 kg

DRUGS (2)
  1. FOSAMAX PLUS D [Suspect]
     Route: 048
     Dates: start: 20070425, end: 20070601
  2. PREDNISONE [Concomitant]
     Indication: ASTHMA
     Route: 065
     Dates: start: 20070309, end: 20070401

REACTIONS (2)
  - FOOT FRACTURE [None]
  - IMPAIRED HEALING [None]
